FAERS Safety Report 5783490-1 (Version None)
Quarter: 2008Q2

REPORT INFORMATION
  Report Type: 
  Country: None (occurrence: None)
  Receive Date: 20080605
  Receipt Date: 20080318
  Transmission Date: 20081010
  Serious: No
  Sender: FDA-Public Use
  Company Number: A0716116A

PATIENT
  Sex: Female

DRUGS (3)
  1. ALLI [Suspect]
  2. INSULIN [Concomitant]
  3. THYROID TAB [Concomitant]

REACTIONS (1)
  - BLOOD INSULIN INCREASED [None]
